FAERS Safety Report 4636846-4 (Version None)
Quarter: 2005Q2

REPORT INFORMATION
  Report Type: 
  Country: None (occurrence: None)
  Receive Date: 20050414
  Receipt Date: 20050405
  Transmission Date: 20051028
  Serious: Yes (Death, Life-Threatening, Hospitalization)
  Sender: FDA-Public Use
  Company Number: 2004PK01948

PATIENT
  Age: 38 Year
  Sex: Male

DRUGS (1)
  1. ASCO TOP [Suspect]
     Indication: HEADACHE
     Dates: start: 20041113

REACTIONS (8)
  - BLOOD PRESSURE INCREASED [None]
  - CEREBRAL HAEMORRHAGE [None]
  - COMA [None]
  - INTRAVENTRICULAR HAEMORRHAGE [None]
  - MYDRIASIS [None]
  - PUPILLARY REFLEX IMPAIRED [None]
  - RENAL FAILURE [None]
  - SELF-MEDICATION [None]
